FAERS Safety Report 14659664 (Version 2)
Quarter: 2018Q3

REPORT INFORMATION
  Report Type: Spontaneous
  Country: IT (occurrence: IT)
  Receive Date: 20180320
  Receipt Date: 20180720
  Transmission Date: 20181010
  Serious: Yes (Life-Threatening)
  Sender: FDA-Public Use
  Company Number: IT-TEVA-2018-IT-868897

PATIENT
  Age: 58 Year
  Sex: Male

DRUGS (13)
  1. SOLU?MEDROL [Concomitant]
     Active Substance: METHYLPREDNISOLONE SODIUM SUCCINATE
     Dates: start: 20180104
  2. DEURSIL [Concomitant]
     Active Substance: URSODIOL
     Route: 048
     Dates: start: 20180101
  3. CALCIPARINA 5.000 UI/0,2 ML SOLUZIONE INIETTABILE PER USO SOTTOCUTANEO [Concomitant]
     Route: 058
     Dates: start: 20171231
  4. CALCIUM GLUCONATE. [Concomitant]
     Active Substance: CALCIUM GLUCONATE
     Dates: start: 20180104
  5. TACNI CAPSULE RIGIDE DA 1 MG [Suspect]
     Active Substance: TACROLIMUS
     Indication: LIVER TRANSPLANT
     Route: 048
     Dates: start: 20180101, end: 20180105
  6. HUMAN SERUM ALBUMIN [Concomitant]
     Active Substance: ALBUMIN HUMAN
     Dates: start: 20171231
  7. LASIX [Concomitant]
     Active Substance: FUROSEMIDE
     Dates: start: 20180101
  8. LUVION [Concomitant]
     Dates: start: 20180101
  9. TAZOCIN 4 G/0,5 G POLVERE PER SOLUZIONE PER INFUSIONE [Concomitant]
     Dates: start: 20171231
  10. KCL RETARD [Concomitant]
     Active Substance: POTASSIUM CHLORIDE
     Dates: start: 20180103
  11. MYCOSTATIN [Concomitant]
     Active Substance: NYSTATIN
     Route: 048
     Dates: start: 20180101
  12. DELTACORTENE [Concomitant]
     Active Substance: PREDNISONE
     Route: 048
     Dates: start: 20180103
  13. LANSOPRAZOLE. [Concomitant]
     Active Substance: LANSOPRAZOLE
     Route: 048
     Dates: start: 20180101

REACTIONS (3)
  - Torsade de pointes [Recovering/Resolving]
  - Electrolyte imbalance [Recovering/Resolving]
  - Ventricular fibrillation [Recovering/Resolving]

NARRATIVE: CASE EVENT DATE: 20180104
